FAERS Safety Report 9601656 (Version 2)
Quarter: 2013Q4

REPORT INFORMATION
  Report Type: Report from Study
  Country: CA (occurrence: CA)
  Receive Date: 20131007
  Receipt Date: 20131007
  Transmission Date: 20140711
  Serious: Yes (Other)
  Sender: FDA-Public Use
  Company Number: CA-JNJFOC-20130909713

PATIENT
  Age: 53 Year
  Sex: Male
  Weight: 105 kg

DRUGS (10)
  1. REMICADE [Suspect]
     Indication: COLITIS ULCERATIVE
     Route: 042
     Dates: start: 20071114
  2. REMICADE [Suspect]
     Indication: COLITIS ULCERATIVE
     Route: 042
     Dates: start: 20080222, end: 20130913
  3. VIAGRA [Concomitant]
     Dosage: AS NECESSARY
     Route: 065
  4. SALOFALK [Concomitant]
     Dosage: AS NEEDED AT BED TIME
     Route: 065
  5. GLYBURIDE [Concomitant]
     Dosage: HALF TABLET TWICE IN A DAY
     Route: 065
  6. NASONEX [Concomitant]
     Dosage: AS NEEDED
     Route: 055
  7. NEXIUM [Concomitant]
     Route: 065
  8. IRBESARTAN [Concomitant]
     Dosage: 12.5 -150 MG
     Route: 065
  9. CRESTOR [Concomitant]
     Route: 065
  10. MCAL-D [Concomitant]
     Route: 065

REACTIONS (2)
  - Intestinal resection [Unknown]
  - Infection [Recovered/Resolved]
